FAERS Safety Report 7228004-4 (Version None)
Quarter: 2011Q1

REPORT INFORMATION
  Report Type: 
  Country: None (occurrence: None)
  Receive Date: 20110114
  Receipt Date: 20110102
  Transmission Date: 20110831
  Serious: Yes (Other)
  Sender: FDA-Public Use
  Company Number: IR-GENENTECH-312045

PATIENT
  Age: 3 Year
  Sex: Male

DRUGS (1)
  1. MABTHERA [Suspect]
     Indication: JUVENILE ARTHRITIS
     Dosage: 100 MG, 1/WEEK
     Route: 042
     Dates: start: 20101201

REACTIONS (3)
  - URTICARIA [None]
  - CHILLS [None]
  - PAIN IN EXTREMITY [None]
